FAERS Safety Report 10520082 (Version 4)
Quarter: 2014Q4

REPORT INFORMATION
  Report Type: Report from Study
  Country: CA (occurrence: CA)
  Receive Date: 20141015
  Receipt Date: 20141105
  Transmission Date: 20150528
  Serious: Yes (Hospitalization)
  Sender: FDA-Public Use
  Company Number: CA-MERCK-1401CAN001874

PATIENT
  Age: 79 Year
  Sex: Male
  Weight: 82.9 kg

DRUGS (12)
  1. VITAMIN D [Concomitant]
     Active Substance: CHOLECALCIFEROL
     Indication: NUTRITIONAL SUPPLEMENTATION
     Dosage: 1000 IU, QD
     Route: 048
     Dates: start: 20100103, end: 20140103
  2. GARLIC. [Concomitant]
     Active Substance: GARLIC
     Indication: NUTRITIONAL SUPPLEMENTATION
     Dosage: 1000 MG, QD
     Route: 048
     Dates: start: 201001, end: 20140103
  3. CRANBERRY. [Concomitant]
     Active Substance: CRANBERRY
     Indication: NUTRITIONAL SUPPLEMENTATION
     Dosage: 6000 MG, QD
     Route: 048
     Dates: start: 201001, end: 20140103
  4. ASCORBIC ACID. [Concomitant]
     Active Substance: ASCORBIC ACID
     Indication: NUTRITIONAL SUPPLEMENTATION
     Dosage: 500 MG, QD
     Route: 048
     Dates: start: 201001, end: 20140103
  5. PEMBROLIZUMAB. [Suspect]
     Active Substance: PEMBROLIZUMAB
     Indication: MALIGNANT MELANOMA
     Dosage: 10 MG/KG, Q3W
     Route: 042
     Dates: start: 20131206, end: 20131206
  6. OMEGA-3 MARINE TRIGLYCERIDES [Concomitant]
     Active Substance: FISH OIL
     Indication: NUTRITIONAL SUPPLEMENTATION
     Dosage: 1200 MG, QD
     Route: 048
     Dates: start: 201001, end: 20140103
  7. GRAPE SEEDS [Concomitant]
     Indication: NUTRITIONAL SUPPLEMENTATION
     Dosage: 100 MG, QD
     Route: 048
     Dates: start: 201001, end: 20140103
  8. APPLE CIDER VINEGAR [Concomitant]
     Active Substance: APPLE CIDER VINEGAR
     Indication: NUTRITIONAL SUPPLEMENTATION
     Dosage: 2 TABLESPOON, ONCE A DAY
     Route: 048
     Dates: start: 201001, end: 20140103
  9. CYANOCOBALAMIN. [Concomitant]
     Active Substance: CYANOCOBALAMIN
     Indication: NUTRITIONAL SUPPLEMENTATION
     Dosage: 12000 MG, QD
     Route: 048
     Dates: start: 201001, end: 20140103
  10. LECITHIN [Concomitant]
     Active Substance: LECITHIN
     Indication: NUTRITIONAL SUPPLEMENTATION
     Dosage: 1200 MG, QD
     Route: 048
     Dates: start: 199301, end: 20140103
  11. CRESTOR [Concomitant]
     Active Substance: ROSUVASTATIN CALCIUM
     Indication: HYPERCHOLESTEROLAEMIA
     Dosage: 5 MG, QD
     Route: 048
     Dates: start: 201201
  12. PYRIDOXINE [Concomitant]
     Active Substance: PYRIDOXINE
     Indication: NUTRITIONAL SUPPLEMENTATION
     Dosage: 12000 MG, QD
     Route: 048
     Dates: start: 201001, end: 20140103

REACTIONS (2)
  - Hepatitis [Recovered/Resolved]
  - Pneumonitis [Recovered/Resolved]

NARRATIVE: CASE EVENT DATE: 20140103
